FAERS Safety Report 13571300 (Version 2)
Quarter: 2017Q2

REPORT INFORMATION
  Report Type: Spontaneous
  Country: JP (occurrence: JP)
  Receive Date: 20170523
  Receipt Date: 20170620
  Transmission Date: 20170830
  Serious: Yes (Other)
  Sender: FDA-Public Use
  Company Number: JP-ROCHE-1937426

PATIENT
  Age: 65 Year
  Sex: Male

DRUGS (4)
  1. LUCENTIS [Suspect]
     Active Substance: RANIBIZUMAB
     Indication: DIABETIC RETINAL OEDEMA
     Dosage: UNK
     Route: 031
     Dates: start: 20150323
  2. LUCENTIS [Suspect]
     Active Substance: RANIBIZUMAB
     Dosage: UNK
     Route: 031
     Dates: start: 20150721, end: 20150721
  3. KENACORT [Concomitant]
     Active Substance: TRIAMCINOLONE
     Indication: DIABETIC RETINAL OEDEMA
     Dosage: UNK
     Route: 065
     Dates: start: 20150709
  4. LUCENTIS [Suspect]
     Active Substance: RANIBIZUMAB
     Dosage: UNK
     Route: 031
     Dates: start: 20150601

REACTIONS (14)
  - Cataract [Unknown]
  - Carotid arteriosclerosis [Unknown]
  - Visual acuity reduced [Unknown]
  - Visual impairment [Recovering/Resolving]
  - Vitreous haemorrhage [Recovered/Resolved]
  - Loss of visual contrast sensitivity [Unknown]
  - Extrapyramidal disorder [Unknown]
  - Retinopathy proliferative [Unknown]
  - Retinogram abnormal [Unknown]
  - Visual field defect [Unknown]
  - Retinal detachment [Unknown]
  - Retinal vascular disorder [Unknown]
  - Retinal degeneration [Unknown]
  - Visual field tests abnormal [Unknown]

NARRATIVE: CASE EVENT DATE: 20150710
